FAERS Safety Report 25421327 (Version 1)
Quarter: 2025Q2

REPORT INFORMATION
  Report Type: Report from Study
  Country: CL (occurrence: CL)
  Receive Date: 20250611
  Receipt Date: 20250611
  Transmission Date: 20250716
  Serious: Yes (Other)
  Sender: SANDOZ
  Company Number: CL-SANDOZ-SDZ2024CL074783

PATIENT
  Sex: Female

DRUGS (1)
  1. ERELZI [Suspect]
     Active Substance: ETANERCEPT-SZZS
     Indication: Rheumatoid arthritis
     Dosage: 50 MG ONCE A WEEK, LAST DOSE WAS ON 17-AUG-2024
     Route: 058
     Dates: start: 20240313, end: 202505

REACTIONS (8)
  - Hepatitis C RNA increased [Unknown]
  - Gastritis [Unknown]
  - Laboratory test abnormal [Unknown]
  - Headache [Unknown]
  - Urinary tract infection [Unknown]
  - Injection site pain [Unknown]
  - Drug ineffective [Unknown]
  - Product substitution issue [Unknown]

NARRATIVE: CASE EVENT DATE: 20240101
